FAERS Safety Report 24345440 (Version 1)
Quarter: 2024Q3

REPORT INFORMATION
  Report Type: Spontaneous
  Country: CN (occurrence: CN)
  Receive Date: 20240920
  Receipt Date: 20240920
  Transmission Date: 20241016
  Serious: Yes (Other)
  Sender: EAGLE
  Company Number: PA2024CN000217

PATIENT

DRUGS (1)
  1. REMIMAZOLAM [Suspect]
     Active Substance: REMIMAZOLAM
     Indication: Induction of anaesthesia
     Dosage: 5 MG, UNK
     Route: 042
     Dates: start: 20240725, end: 20240725

REACTIONS (3)
  - Delayed recovery from anaesthesia [Recovered/Resolved]
  - Delirium [Unknown]
  - Hypersensitivity [Recovered/Resolved]

NARRATIVE: CASE EVENT DATE: 20240725
